FAERS Safety Report 10079186 (Version 1)
Quarter: 2014Q2

REPORT INFORMATION
  Report Type: Spontaneous
  Country: US (occurrence: None)
  Receive Date: 20140414
  Receipt Date: 20140414
  Transmission Date: 20141212
  Serious: Yes (Death)
  Sender: FDA-Public Use
  Company Number: None

PATIENT
  Age: 57 Year
  Sex: Male
  Weight: 63.5 kg

DRUGS (7)
  1. TESTOSTERONE [Suspect]
     Indication: BLOOD TESTOSTERONE DECREASED
     Dosage: PER 500 ML OR 1 G; 2 PUFFS OR 1 TEASPOON
     Dates: start: 20110109, end: 20110131
  2. ANDROGEL [Suspect]
  3. OXYCODONE [Concomitant]
  4. XANAX [Concomitant]
  5. LISINOPRIL [Concomitant]
  6. BYSTOLIC [Concomitant]
  7. VIAGRA [Concomitant]

REACTIONS (5)
  - Dyskinesia [None]
  - Myocardial infarction [None]
  - Musculoskeletal pain [None]
  - Hypertension [None]
  - Arthralgia [None]
